FAERS Safety Report 13001198 (Version 2)
Quarter: 2017Q2

REPORT INFORMATION
  Report Type: Spontaneous
  Country: GB (occurrence: GB)
  Receive Date: 20161206
  Receipt Date: 20170526
  Transmission Date: 20170830
  Serious: Yes (Other)
  Sender: FDA-Public Use
  Company Number: GB-AUROBINDO-AUR-APL-2016-14627

PATIENT
  Age: 66 Year
  Sex: Female

DRUGS (3)
  1. FLUCLOXACILLIN CAPSULES BP 500 MG [Suspect]
     Active Substance: FLUCLOXACILLIN
     Indication: PRODUCT USED FOR UNKNOWN INDICATION
     Dosage: 500 MG, FOUR TIMES/DAY
     Route: 048
     Dates: start: 20161020
  2. LOSARTAN POTASSIUM FILM COATED TABLETS 50 MG [Suspect]
     Active Substance: LOSARTAN POTASSIUM
     Indication: PRODUCT USED FOR UNKNOWN INDICATION
     Dosage: 50 MG, UNK
     Route: 065
  3. CHLORAMPHENICOL [Concomitant]
     Active Substance: CHLORAMPHENICOL
     Indication: PRODUCT USED FOR UNKNOWN INDICATION
     Route: 065
     Dates: start: 20161020

REACTIONS (13)
  - Sensation of foreign body [Unknown]
  - Obstructive airways disorder [Unknown]
  - Balance disorder [Unknown]
  - Choking [Unknown]
  - Cough [Unknown]
  - Nasal obstruction [Unknown]
  - Feeling abnormal [Unknown]
  - Confusional state [Unknown]
  - Dizziness [Recovered/Resolved]
  - Loss of consciousness [Unknown]
  - Visual impairment [Unknown]
  - Accidental exposure to product packaging [Unknown]
  - Eye contusion [Unknown]

NARRATIVE: CASE EVENT DATE: 20161020
